FAERS Safety Report 9238456 (Version 4)
Quarter: 2013Q3

REPORT INFORMATION
  Report Type: Spontaneous
  Country: DK (occurrence: DK)
  Receive Date: 20130418
  Receipt Date: 20130813
  Transmission Date: 20140515
  Serious: Yes (Other)
  Sender: FDA-Public Use
  Company Number: PHHY2013DK036263

PATIENT
  Age: 41 Year
  Sex: Female

DRUGS (11)
  1. IFOSFAMIDE [Suspect]
     Indication: EWING^S SARCOMA
     Dosage: 6 G (3 SERIES OF 6 GRAM DAILY FOR 3 CONSECUTIVE DAYS)
  2. IFOSFAMIDE [Interacting]
     Dosage: 4.8 G (1 SERIES OF 4.8 GRAM DAILY FOR 3 CONSECUTIVE DAYS)
  3. FLUCONAZOL [Interacting]
     Indication: ORAL CANDIDIASIS
     Dosage: 100 MG, QD (100 MG DAILY DOSE FOR 10 DAYS RELATED TO THE CHEMOTHERAPY SERIES)
     Route: 048
  4. DOXORUBICIN [Interacting]
     Indication: EWING^S SARCOMA
     Dosage: 40 MG, DAILY FOR 3 CONSECUTIVE DAYS IN 4 SERIES
  5. DOXORUBICIN [Interacting]
     Dosage: 30 MG, DAILY FOR 3 CONSECUTIVE DAYS IN 2 SERIES
  6. ETOPOSIDE [Interacting]
     Indication: EWING^S SARCOMA
     Dosage: 300 MG, UNK
  7. ETOPOSIDE [Interacting]
     Dosage: 240 MG (1 SERIES OF 240 MG DAILY FOR 3 CONSECUTIVE DAYS)
  8. ETOPOSIDE [Interacting]
     Dosage: 180 MG (3 SERIES OF )
  9. VINCRISTINE [Interacting]
     Indication: EWING^S SARCOMA
     Dosage: 2 MG, (5 SERIES OF 2MG SINGLE DOSE)
  10. PREDNISOLONE [Concomitant]
  11. MIRTAZAPINE [Concomitant]

REACTIONS (10)
  - Neurotoxicity [Recovering/Resolving]
  - Motor dysfunction [Not Recovered/Not Resolved]
  - Renal impairment [Recovering/Resolving]
  - Mucosal inflammation [Recovering/Resolving]
  - Bone marrow failure [Recovering/Resolving]
  - Paraesthesia [Not Recovered/Not Resolved]
  - Drug interaction [Unknown]
  - Drug level increased [Unknown]
  - Neuropathy peripheral [Recovering/Resolving]
  - Oral candidiasis [Unknown]
